FAERS Safety Report 10891187 (Version 4)
Quarter: 2015Q2

REPORT INFORMATION
  Report Type: Spontaneous
  Country: JP (occurrence: JP)
  Receive Date: 20150305
  Receipt Date: 20150515
  Transmission Date: 20150821
  Serious: Yes (Hospitalization, Other)
  Sender: FDA-Public Use
  Company Number: JP-ASTRAZENECA-2015SE19235

PATIENT
  Age: 75 Year
  Sex: Male
  Weight: 66 kg

DRUGS (1)
  1. ZOLADEX [Suspect]
     Active Substance: GOSERELIN ACETATE
     Indication: PROSTATE CANCER
     Route: 058
     Dates: start: 20140110

REACTIONS (4)
  - Constipation [Recovered/Resolved]
  - Postoperative wound infection [Recovered/Resolved]
  - Abdominal abscess [Recovered/Resolved]
  - Ileus paralytic [Unknown]

NARRATIVE: CASE EVENT DATE: 20140207
